FAERS Safety Report 9367613 (Version 2)
Quarter: 2013Q4

REPORT INFORMATION
  Report Type: Spontaneous
  Country: US (occurrence: US)
  Receive Date: 20130625
  Receipt Date: 20131212
  Transmission Date: 20140711
  Serious: Yes (Hospitalization)
  Sender: FDA-Public Use
  Company Number: US-B.I. PHARMACEUTICALS,INC./RIDGEFIELD-2013-BI-17937BP

PATIENT
  Sex: Female
  Weight: 83.46 kg

DRUGS (21)
  1. PRADAXA [Suspect]
     Indication: ANTICOAGULANT THERAPY
     Dosage: 300 MG
     Dates: start: 20110512, end: 20110803
  2. ALBUTEROL INHALER [Concomitant]
     Route: 055
  3. AMLODIPINE [Concomitant]
     Dosage: 50 MG
     Route: 048
  4. ARTHROTEC [Concomitant]
     Route: 048
  5. GALANTAMINE [Concomitant]
     Dosage: 8 MG
     Route: 048
  6. HYDRALAZINE [Concomitant]
     Dosage: 25 MG
     Route: 048
  7. VICODIN [Concomitant]
     Route: 048
  8. ISOSORBIDE MONONITRATE ER [Concomitant]
     Dosage: 30 MG
     Route: 048
  9. K-LOR [Concomitant]
     Dosage: 10 MEQ
     Route: 048
  10. NITTROSTAT [Concomitant]
     Route: 060
  11. OMEPRAZOLE [Concomitant]
     Dosage: 20 MG
     Route: 048
  12. PRAVASTATIN [Concomitant]
     Dosage: 20 MG
     Route: 048
  13. SPIRIVA HANDIHALER [Concomitant]
     Dosage: 18 MCG
  14. VESICARE [Concomitant]
     Dosage: 5 MG
     Route: 048
  15. VITAMIN B COMPLEX [Concomitant]
     Route: 048
  16. VITAMIN D3 [Concomitant]
     Route: 048
  17. FUROSEMIDE [Concomitant]
     Dosage: 40 MG
  18. PROAIR [Concomitant]
  19. HYDROCHLOROTHIAZIDE [Concomitant]
     Dosage: 25 MG
  20. ATELVIA [Concomitant]
     Dosage: 3.5714 MG
  21. LORAZEPAM [Concomitant]
     Dosage: 1 MG
     Route: 048

REACTIONS (2)
  - Gastrointestinal haemorrhage [Unknown]
  - Anaemia [Unknown]
